FAERS Safety Report 24218413 (Version 3)
Quarter: 2024Q3

REPORT INFORMATION
  Report Type: Spontaneous
  Country: MX (occurrence: MX)
  Receive Date: 20240816
  Receipt Date: 20240930
  Transmission Date: 20241017
  Serious: Yes (Other)
  Sender: CSL BEHRING
  Company Number: MX-BEH-2024177059

PATIENT

DRUGS (1)
  1. ALBUMIN HUMAN [Suspect]
     Active Substance: ALBUMIN HUMAN
     Dosage: UNK, 1 VIAL
     Route: 065

REACTIONS (2)
  - Suspected counterfeit product [Unknown]
  - Product with quality issue administered [Unknown]
